FAERS Safety Report 10969172 (Version 1)
Quarter: 2015Q1

REPORT INFORMATION
  Report Type: Spontaneous
  Country: US (occurrence: US)
  Receive Date: 20150331
  Receipt Date: 20150331
  Transmission Date: 20150721
  Serious: Yes (Other)
  Sender: FDA-Public Use
  Company Number: US-ASTRAZENECA-2015SE28554

PATIENT
  Age: 75 Year
  Sex: Male
  Weight: 99.8 kg

DRUGS (3)
  1. OMEPRAZOLE. [Suspect]
     Active Substance: OMEPRAZOLE
     Route: 048
     Dates: start: 2014
  2. INSULIN [Concomitant]
     Active Substance: INSULIN NOS
     Indication: DIABETES MELLITUS
     Route: 058
  3. NEXIUM [Suspect]
     Active Substance: ESOMEPRAZOLE MAGNESIUM
     Indication: GASTROOESOPHAGEAL REFLUX DISEASE
     Route: 048
     Dates: start: 2014

REACTIONS (6)
  - Nocturia [Recovering/Resolving]
  - Electrolyte depletion [Unknown]
  - Intentional product misuse [Unknown]
  - Dehydration [Unknown]
  - Drug ineffective [Unknown]
  - Prostate cancer [Unknown]

NARRATIVE: CASE EVENT DATE: 2015
